FAERS Safety Report 9846609 (Version 1)
Quarter: 2014Q1

REPORT INFORMATION
  Report Type: Spontaneous
  Country: GR (occurrence: None)
  Receive Date: 20140122
  Receipt Date: 20140122
  Transmission Date: 20141002
  Serious: Yes (Hospitalization)
  Sender: FDA-Public Use
  Company Number: 2014P1000185

PATIENT
  Age: 37 Year
  Sex: Female

DRUGS (2)
  1. HYDROXYCHLOROQUINE [Suspect]
     Indication: PSORIASIS
     Route: 048
  2. METHYLPREDNISOLONE [Concomitant]

REACTIONS (7)
  - Pustular psoriasis [None]
  - Psoriasis [None]
  - Dermatitis exfoliative [None]
  - Face oedema [None]
  - Oedema peripheral [None]
  - Maternal exposure during pregnancy [None]
  - Caesarean section [None]
